FAERS Safety Report 12303848 (Version 1)
Quarter: 2016Q2

REPORT INFORMATION
  Report Type: Spontaneous
  Country: US (occurrence: None)
  Receive Date: 20160425
  Receipt Date: 20160425
  Transmission Date: 20160815
  Serious: Yes (Hospitalization)
  Sender: FDA-Public Use
  Company Number: None

PATIENT
  Age: 73 Year
  Sex: Female
  Weight: 48.08 kg

DRUGS (7)
  1. FLUTICASONE PROPIONATE. [Suspect]
     Active Substance: FLUTICASONE PROPIONATE
     Indication: RHINITIS ALLERGIC
     Dosage: 16 G IN THE MORNING NASAL SPRAY
  2. VITAMIN D [Concomitant]
     Active Substance: CHOLECALCIFEROL
  3. NAPROXEN. [Concomitant]
     Active Substance: NAPROXEN
  4. MVI [Concomitant]
     Active Substance: VITAMINS
  5. CLARITIN [Concomitant]
     Active Substance: LORATADINE
  6. ADVAIR HFA [Concomitant]
     Active Substance: FLUTICASONE PROPIONATE\SALMETEROL XINAFOATE
  7. PROTONIX [Concomitant]
     Active Substance: PANTOPRAZOLE SODIUM

REACTIONS (5)
  - Haematocrit decreased [None]
  - Facial pain [None]
  - Epistaxis [None]
  - Procedural pain [None]
  - Nasal mucosal disorder [None]

NARRATIVE: CASE EVENT DATE: 20160418
